FAERS Safety Report 20477915 (Version 1)
Quarter: 2022Q1

REPORT INFORMATION
  Report Type: Spontaneous
  Country: US (occurrence: US)
  Receive Date: 20220216
  Receipt Date: 20220216
  Transmission Date: 20220423
  Serious: No
  Sender: FDA-Public Use
  Company Number: US-SA-SAC20220210001414

PATIENT
  Sex: Female

DRUGS (11)
  1. KEVZARA [Suspect]
     Active Substance: SARILUMAB
     Dosage: 200 MG, QOW
     Route: 058
     Dates: start: 20220127
  2. OMEPRAZOLE [Suspect]
     Active Substance: OMEPRAZOLE
     Dosage: 30MG
  3. TRULICITY [Concomitant]
     Active Substance: DULAGLUTIDE
     Dosage: 10MG
  4. CELEBREX [Concomitant]
     Active Substance: CELECOXIB
  5. HYDROXYZINE [Concomitant]
     Active Substance: HYDROXYZINE HYDROCHLORIDE
  6. LEFLUNOMIDE [Concomitant]
     Active Substance: LEFLUNOMIDE
  7. PERCOCET [Concomitant]
     Active Substance: ACETAMINOPHEN\OXYCODONE HYDROCHLORIDE
     Dosage: UNK, 5-325MG
  8. PROCARDIA [Concomitant]
     Active Substance: NIFEDIPINE
  9. ROPINIROLE [Concomitant]
     Active Substance: ROPINIROLE
  10. LEVOTHYROXINE [Concomitant]
     Active Substance: LEVOTHYROXINE
  11. LEVOCETIRIZINE DIHYDROCHLORIDE [Concomitant]
     Active Substance: LEVOCETIRIZINE DIHYDROCHLORIDE

REACTIONS (3)
  - Rash papular [Unknown]
  - Nasal congestion [Unknown]
  - Pain [Unknown]
